FAERS Safety Report 10880875 (Version 1)
Quarter: 2015Q1

REPORT INFORMATION
  Report Type: Spontaneous
  Country: None (occurrence: None)
  Receive Date: 20150225
  Receipt Date: 20150225
  Transmission Date: 20150721
  Serious: Yes (Disabling)
  Sender: FDA-Public Use
  Company Number: PR 4653

PATIENT
  Sex: Female

DRUGS (2)
  1. COSOPT [Suspect]
     Active Substance: DORZOLAMIDE HYDROCHLORIDE\TIMOLOL MALEATE
  2. XALATAN [Concomitant]
     Active Substance: LATANOPROST

REACTIONS (3)
  - Eye irritation [None]
  - Cataract [None]
  - Ocular hyperaemia [None]
